FAERS Safety Report 8034658-5 (Version None)
Quarter: 2012Q1

REPORT INFORMATION
  Report Type: 
  Country: None (occurrence: None)
  Receive Date: 20120110
  Receipt Date: 20120106
  Transmission Date: 20120608
  Serious: Yes (Hospitalization, Other)
  Sender: FDA-Public Use
  Company Number: EG-MERCK-1112USA03317

PATIENT
  Age: 67 Year
  Sex: Male
  Weight: 84 kg

DRUGS (5)
  1. GLUCOPHAGE [Concomitant]
     Route: 065
     Dates: start: 20040101, end: 20070101
  2. GLUCOPHAGE [Concomitant]
     Indication: DIABETES MELLITUS
     Route: 065
     Dates: start: 20080101
  3. JANUVIA [Suspect]
     Indication: DIABETES MELLITUS
     Route: 048
     Dates: start: 20100301, end: 20111201
  4. JANUVIA [Suspect]
     Route: 048
     Dates: start: 20070101, end: 20080101
  5. GLUCOPHAGE [Concomitant]
     Route: 065
     Dates: start: 20000101, end: 20040101

REACTIONS (6)
  - CHOLELITHIASIS OBSTRUCTIVE [None]
  - AMYLASE ABNORMAL [None]
  - INSULIN C-PEPTIDE ABNORMAL [None]
  - DYSPEPSIA [None]
  - FLATULENCE [None]
  - LIPASE ABNORMAL [None]
